APPROVED DRUG PRODUCT: IBUPROFEN AND PSEUDOEPHEDRINE HYDROCHLORIDE
Active Ingredient: IBUPROFEN; PSEUDOEPHEDRINE HYDROCHLORIDE
Strength: 200MG;30MG
Dosage Form/Route: TABLET;ORAL
Application: A213565 | Product #001
Applicant: AUROBINDO PHARMA LTD
Approved: Mar 10, 2023 | RLD: No | RS: No | Type: OTC